FAERS Safety Report 10467166 (Version 2)
Quarter: 2014Q4

REPORT INFORMATION
  Report Type: Spontaneous
  Country: FR (occurrence: FR)
  Receive Date: 20140922
  Receipt Date: 20141020
  Transmission Date: 20150528
  Serious: Yes (Other)
  Sender: FDA-Public Use
  Company Number: FR-ELI_LILLY_AND_COMPANY-FR201409004026

PATIENT
  Age: 44 Year
  Sex: Female

DRUGS (31)
  1. ALIMTA [Suspect]
     Active Substance: PEMETREXED DISODIUM
     Dosage: 900 MG, CYCLICAL
     Route: 042
     Dates: start: 20140616
  2. AVASTIN [Suspect]
     Active Substance: BEVACIZUMAB
     Dosage: 475 MG, CYCLICAL
     Route: 042
     Dates: start: 20140526
  3. CARBOPLATIN. [Suspect]
     Active Substance: CARBOPLATIN
     Dosage: 530 MG, CYCLICAL
     Dates: start: 20140324
  4. PHLOROGLUCINOL [Concomitant]
     Active Substance: PHLOROGLUCINOL
  5. CARBOPLATIN. [Suspect]
     Active Substance: CARBOPLATIN
     Indication: ADENOCARCINOMA
     Dosage: 600 MG, CYCLICAL
     Route: 042
     Dates: start: 20140210
  6. MACROGOL [Concomitant]
     Active Substance: POLYETHYLENE GLYCOLS
  7. PREDNISONE. [Concomitant]
     Active Substance: PREDNISONE
     Dosage: 3 DF, QD
  8. AVASTIN [Suspect]
     Active Substance: BEVACIZUMAB
     Indication: ADENOCARCINOMA
     Dosage: 450 MG, CYCLICAL
     Route: 042
     Dates: start: 20140324
  9. ACIDE FOLIQUE [Concomitant]
     Active Substance: FOLIC ACID
  10. LEVETIRACETAM. [Concomitant]
     Active Substance: LEVETIRACETAM
     Dosage: 2 DF, QD
  11. ALIMTA [Suspect]
     Active Substance: PEMETREXED DISODIUM
     Dosage: 850 MG, CYCLICAL
     Route: 042
     Dates: start: 20140526
  12. AVASTIN [Suspect]
     Active Substance: BEVACIZUMAB
     Dosage: 525 MG, CYCLICAL
     Route: 042
     Dates: start: 20140616
  13. ALPRAZOLAM. [Concomitant]
     Active Substance: ALPRAZOLAM
     Dosage: 0.5 MG, EACH EVENING
  14. ALIMTA [Suspect]
     Active Substance: PEMETREXED DISODIUM
     Dosage: 925 MG, CYCLICAL
     Route: 042
     Dates: start: 20140707
  15. AVASTIN [Suspect]
     Active Substance: BEVACIZUMAB
     Dosage: 550 MG, CYCLICAL
     Route: 042
     Dates: start: 20140707
  16. CARBOPLATIN. [Suspect]
     Active Substance: CARBOPLATIN
     Dosage: 550 MG, CYCLICAL
     Route: 042
     Dates: start: 20140414
  17. CARBOPLATIN. [Suspect]
     Active Substance: CARBOPLATIN
     Dosage: 550 MG, CYCLICAL
     Route: 042
     Dates: start: 20140505
  18. ALIMTA [Suspect]
     Active Substance: PEMETREXED DISODIUM
     Indication: ADENOCARCINOMA
     Dosage: 825 MG, CYCLICAL
     Route: 042
     Dates: start: 20140210
  19. ALIMTA [Suspect]
     Active Substance: PEMETREXED DISODIUM
     Dosage: 825 MG, CYCLICAL
     Route: 042
     Dates: start: 20140303
  20. ALIMTA [Suspect]
     Active Substance: PEMETREXED DISODIUM
     Dosage: 850 MG, CYCLICAL
     Route: 042
     Dates: start: 20140414
  21. ALIMTA [Suspect]
     Active Substance: PEMETREXED DISODIUM
     Dosage: 850 MG, CYCLICAL
     Route: 042
     Dates: start: 20140505
  22. ALIMTA [Suspect]
     Active Substance: PEMETREXED DISODIUM
     Dosage: 900 MG, CYCLICAL
     Route: 042
     Dates: start: 20140728
  23. AVASTIN [Suspect]
     Active Substance: BEVACIZUMAB
     Dosage: 550 MG, CYCLICAL
     Route: 042
     Dates: start: 20140728
  24. CARBOPLATIN. [Suspect]
     Active Substance: CARBOPLATIN
     Dosage: 530 MG, CYCLICAL
     Dates: start: 20140303
  25. LARGACTIL                          /00011901/ [Concomitant]
     Active Substance: CHLORPROMAZINE
  26. AERIUS [Concomitant]
     Active Substance: DESLORATADINE
  27. ALIMTA [Suspect]
     Active Substance: PEMETREXED DISODIUM
     Dosage: 825 MG, CYCLICAL
     Route: 042
     Dates: start: 20140324
  28. AVASTIN [Suspect]
     Active Substance: BEVACIZUMAB
     Dosage: 475 MG, CYCLICAL
     Route: 042
     Dates: start: 20140414
  29. AVASTIN [Suspect]
     Active Substance: BEVACIZUMAB
     Dosage: 475 MG, CYCLICAL
     Route: 042
     Dates: start: 20140505
  30. LAROXYL [Concomitant]
     Active Substance: AMITRIPTYLINE
     Dosage: 15 DF, EACH EVENING
  31. PRIMPERAN [Concomitant]
     Active Substance: METOCLOPRAMIDE HYDROCHLORIDE
     Dosage: 3 DF, QD

REACTIONS (6)
  - Off label use [Unknown]
  - Burning sensation [Recovering/Resolving]
  - Oedema [Recovering/Resolving]
  - Pruritus [Recovering/Resolving]
  - Arthralgia [Recovering/Resolving]
  - Erythema [Recovering/Resolving]

NARRATIVE: CASE EVENT DATE: 201402
